FAERS Safety Report 9297539 (Version 1)
Quarter: 2013Q2

REPORT INFORMATION
  Report Type: Spontaneous
  Country: US (occurrence: None)
  Receive Date: 20130517
  Receipt Date: 20130517
  Transmission Date: 20140414
  Serious: Yes (Hospitalization)
  Sender: FDA-Public Use
  Company Number: None

PATIENT
  Age: 63 Year
  Sex: Male
  Weight: 107.5 kg

DRUGS (1)
  1. AMOXICILLIN/CLAVULANATE [Suspect]
     Dosage: 1 TAB
     Route: 048
     Dates: start: 20130313, end: 20130329

REACTIONS (2)
  - Hepatotoxicity [None]
  - Hepatic enzyme increased [None]
